FAERS Safety Report 4288855-5 (Version None)
Quarter: 2004Q1

REPORT INFORMATION
  Report Type: 
  Country: None (occurrence: None)
  Receive Date: 20040205
  Receipt Date: 20040122
  Transmission Date: 20041129
  Serious: Yes (Hospitalization)
  Sender: FDA-Public Use
  Company Number: 2004AP00498

PATIENT
  Age: 76 Year
  Sex: Female

DRUGS (8)
  1. IRESSA [Suspect]
     Indication: NON-SMALL CELL LUNG CANCER
     Dosage: 250 MG DAILY PO
     Route: 048
     Dates: start: 20030922, end: 20031022
  2. DIPYRIDAMOLE [Concomitant]
  3. HUSTAZOL [Concomitant]
  4. MEPTIN [Concomitant]
  5. SELBEX [Concomitant]
  6. KELNAC [Concomitant]
  7. CALONAL [Concomitant]
  8. RADIATION THERAPY [Concomitant]

REACTIONS (3)
  - DYSPNOEA [None]
  - PYREXIA [None]
  - STOMATITIS [None]
